FAERS Safety Report 10396215 (Version 1)
Quarter: 2014Q1

REPORT INFORMATION
  Report Type: Spontaneous
  Country: US (occurrence: None)
  Receive Date: 20130124
  Receipt Date: 20130124
  Transmission Date: 20141002
  Serious: Yes (Death)
  Sender: FDA-Public Use
  Company Number: 2012PROUSA01119

PATIENT
  Age: 68 Year
  Sex: Male
  Weight: 79.1 kg

DRUGS (4)
  1. PROVENGE (SIPULEUCEL-T) SUSPENSION, 250ML [Suspect]
     Indication: PROSTATE CANCER METASTATIC
     Route: 042
     Dates: start: 20120223, end: 20120223
  2. MEGACE (MEGESTROL ACETATE) [Concomitant]
  3. LUPRON (LEUPRORELIN ACETATE) [Concomitant]
  4. CASODEX (BICALUTAMIDE) [Concomitant]

REACTIONS (11)
  - Disease progression [None]
  - Haemoglobin decreased [None]
  - Somnolence [None]
  - Sciatica [None]
  - Limb discomfort [None]
  - Retching [None]
  - Nausea [None]
  - Chills [None]
  - Fatigue [None]
  - Insomnia [None]
  - Myalgia [None]
